FAERS Safety Report 5267102-1 (Version None)
Quarter: 2007Q1

REPORT INFORMATION
  Report Type: 
  Country: None (occurrence: None)
  Receive Date: 20070316
  Receipt Date: 20070306
  Transmission Date: 20070707
  Serious: Yes (Other)
  Sender: FDA-Public Use
  Company Number: IT-JNJFOC-20070301693

PATIENT
  Age: 27 Year
  Sex: Male

DRUGS (1)
  1. TOPAMAX [Suspect]
     Indication: GRAND MAL CONVULSION
     Route: 065

REACTIONS (1)
  - RHABDOMYOLYSIS [None]
